FAERS Safety Report 7544930-0 (Version None)
Quarter: 2011Q2

REPORT INFORMATION
  Report Type: 
  Country: None (occurrence: None)
  Receive Date: 20110614
  Receipt Date: 20110530
  Transmission Date: 20111010
  Serious: Yes (Hospitalization)
  Sender: FDA-Public Use
  Company Number: US-BAYER-2010-009132

PATIENT
  Age: 21 Year
  Sex: Female
  Weight: 54.422 kg

DRUGS (12)
  1. YASMIN [Suspect]
     Indication: PREMENSTRUAL SYNDROME
  2. DROSPIRENONE AND ETHINYL ESTRADIOL [Suspect]
     Indication: PREMENSTRUAL SYNDROME
  3. MICROGESTIN 1.5/30 [Concomitant]
  4. YAZ [Suspect]
     Indication: CONTRACEPTION
     Dosage: UNK
     Dates: start: 20080101, end: 20100101
  5. YAZ [Suspect]
     Indication: ACNE
  6. DROSPIRENONE AND ETHINYL ESTRADIOL [Suspect]
     Indication: ACNE
  7. ADDERALL 10 [Concomitant]
  8. YASMIN [Suspect]
     Indication: CONTRACEPTION
     Dosage: UNK
     Dates: start: 20080101, end: 20100101
  9. YASMIN [Suspect]
     Indication: ACNE
  10. JUNEL FE [Concomitant]
  11. YAZ [Suspect]
     Indication: PREMENSTRUAL SYNDROME
  12. DROSPIRENONE AND ETHINYL ESTRADIOL [Suspect]
     Indication: CONTRACEPTION
     Dosage: UNK
     Dates: start: 20080101, end: 20100101

REACTIONS (3)
  - DEEP VEIN THROMBOSIS [None]
  - PAIN [None]
  - THROMBOSIS [None]
